FAERS Safety Report 6056478-3 (Version None)
Quarter: 2009Q1

REPORT INFORMATION
  Report Type: 
  Country: None (occurrence: None)
  Receive Date: 20090126
  Receipt Date: 20090126
  Transmission Date: 20090719
  Serious: Yes (Hospitalization)
  Sender: FDA-Public Use
  Company Number: None

PATIENT
  Age: 51 Year
  Sex: Male
  Weight: 60.2 kg

DRUGS (1)
  1. PRECEDEX [Suspect]
     Indication: ALCOHOL WITHDRAWAL SYNDROME
     Dosage: IV INFUSION
     Route: 042
     Dates: start: 20080918

REACTIONS (5)
  - ASPIRATION [None]
  - HYPERTENSION [None]
  - INJURY [None]
  - LIP SWELLING [None]
  - SWOLLEN TONGUE [None]
